FAERS Safety Report 8254624-4 (Version None)
Quarter: 2012Q2

REPORT INFORMATION
  Report Type: 
  Country: None (occurrence: None)
  Receive Date: 20120403
  Receipt Date: 20120326
  Transmission Date: 20120825
  Serious: Yes (Hospitalization, Other)
  Sender: FDA-Public Use
  Company Number: US-BAYER-201034578NA

PATIENT
  Age: 41 Year
  Sex: Female
  Weight: 108.84 kg

DRUGS (16)
  1. MOTRIN [Concomitant]
     Route: 048
  2. INDOCIN [Concomitant]
  3. MULTI-VITAMINS [Concomitant]
     Indication: VITAMIN SUPPLEMENTATION
     Dosage: 1 DF, QD
     Dates: start: 20070101
  4. YASMIN [Suspect]
     Indication: ENDOMETRIOSIS
     Dosage: UNK UNK, UNK
     Route: 048
     Dates: start: 20000101, end: 20080101
  5. GABAPENTIN [Concomitant]
     Indication: PAIN
     Dosage: 900 MG, QD
     Route: 048
     Dates: start: 20070101
  6. ACYCLOVIR [Concomitant]
     Route: 048
  7. BENADRYL [Concomitant]
     Indication: MULTIPLE ALLERGIES
     Dosage: 25 MG, PRN
     Route: 048
     Dates: start: 20080101
  8. FRAGMIN [Concomitant]
     Dosage: 100 UNITS/KG EVERY 12 HOURLY
     Route: 058
     Dates: start: 20080915
  9. NAPROXEN SODIUM AND PSEUDOEPHEDRINE HYDROCHLORIDE [Concomitant]
     Indication: PRODUCT USED FOR UNKNOWN INDICATION
     Dosage: 500 MG, BID
     Dates: start: 20080214, end: 20080905
  10. PREDNISONE TAB [Concomitant]
     Indication: PRODUCT USED FOR UNKNOWN INDICATION
     Dosage: 10 MG, UNK
     Dates: start: 20080625, end: 20080905
  11. PROZAC [Concomitant]
     Indication: PREMENSTRUAL SYNDROME
     Dosage: 40 MG, PRN
     Route: 048
  12. PROZAC [Concomitant]
     Indication: DEPRESSION
  13. YAZ [Suspect]
     Indication: ENDOMETRIOSIS
     Dosage: UNK UNK, UNK
     Route: 048
     Dates: start: 20000101, end: 20080101
  14. INDOMETHACIN [Concomitant]
     Dosage: 75 MG, BID
     Route: 048
  15. LORTAB [Concomitant]
     Route: 048
  16. IBUPROFEN [Concomitant]
     Indication: HEADACHE
     Dosage: 800 MG, TID

REACTIONS (4)
  - TACHYCARDIA [None]
  - CARDIAC VENTRICULAR DISORDER [None]
  - HYPOTENSION [None]
  - PULMONARY EMBOLISM [None]
